FAERS Safety Report 8560167-0 (Version None)
Quarter: 2012Q3

REPORT INFORMATION
  Report Type: 
  Country: None (occurrence: None)
  Receive Date: 20120723
  Receipt Date: 20120711
  Transmission Date: 20120928
  Serious: Yes (Hospitalization)
  Sender: FDA-Public Use
  Company Number: AUR-APL-2012-03002

PATIENT
  Sex: Male
  Weight: 100 kg

DRUGS (3)
  1. AMLODIPINE [Suspect]
     Indication: HYPERTENSION
     Dosage: (5 MG),ORAL
     Route: 048
     Dates: start: 20120613, end: 20120628
  2. ACETAMINOPHEN [Concomitant]
  3. CODEINE SULFATE [Concomitant]

REACTIONS (1)
  - TESTICULAR SWELLING [None]
